FAERS Safety Report 6541991-2 (Version None)
Quarter: 2010Q1

REPORT INFORMATION
  Report Type: 
  Country: None (occurrence: None)
  Receive Date: 20100119
  Receipt Date: 20100106
  Transmission Date: 20100710
  Serious: Yes (Hospitalization)
  Sender: FDA-Public Use
  Company Number: US-MYLANLABS-2010S1000239

PATIENT
  Age: 48 Year
  Sex: Female

DRUGS (8)
  1. OXYBUTYNIN CHLORIDE [Suspect]
     Indication: HYPERTONIC BLADDER
     Route: 048
     Dates: start: 20091226, end: 20091228
  2. SYNTHROID [Concomitant]
     Indication: HYPOTHYROIDISM
     Route: 048
  3. LORATADINE [Concomitant]
     Indication: HYPERSENSITIVITY
     Route: 048
  4. OMEPRAZOLE [Concomitant]
     Indication: GASTROOESOPHAGEAL REFLUX DISEASE
     Route: 048
  5. FLONASE [Concomitant]
     Indication: ASTHMA
     Dosage: 2 SPRAYS EACH NOSTRIL
     Route: 045
  6. ADVAIR [Concomitant]
     Indication: ASTHMA
     Route: 055
  7. VITAMIN E [Concomitant]
     Indication: HEPATIC STEATOSIS
     Route: 048
  8. RED YEAST RICE [Concomitant]
     Indication: BLOOD CHOLESTEROL INCREASED
     Route: 048

REACTIONS (6)
  - BACK PAIN [None]
  - CHEST PAIN [None]
  - CONFUSIONAL STATE [None]
  - HYPERTENSION [None]
  - HYPERTONIC BLADDER [None]
  - VOMITING [None]
